FAERS Safety Report 7946632-5 (Version None)
Quarter: 2011Q4

REPORT INFORMATION
  Report Type: 
  Country: None (occurrence: None)
  Receive Date: 20111123
  Receipt Date: 20111108
  Transmission Date: 20120403
  Serious: Yes (Other)
  Sender: FDA-Public Use
  Company Number: 1000025583

PATIENT
  Age: 72 Year
  Sex: Female
  Weight: 110 kg

DRUGS (1)
  1. LEXAPRO [Suspect]

REACTIONS (1)
  - BLINDNESS [None]
